FAERS Safety Report 12965091 (Version 1)
Quarter: 2016Q4

REPORT INFORMATION
  Report Type: Spontaneous
  Country: US (occurrence: US)
  Receive Date: 20161122
  Receipt Date: 20161122
  Transmission Date: 20170207
  Serious: No
  Sender: FDA-Public Use
  Company Number: US-BAYER-2016-221483

PATIENT
  Sex: Female

DRUGS (1)
  1. MIRENA [Suspect]
     Active Substance: LEVONORGESTREL
     Dosage: 20 MCG/24HR, CONT
     Route: 015
     Dates: start: 20161013

REACTIONS (7)
  - Crying [None]
  - Muscle spasms [None]
  - Pain [None]
  - Sleep disorder [None]
  - Back pain [None]
  - Arthralgia [None]
  - Pelvic pain [None]

NARRATIVE: CASE EVENT DATE: 201611
